FAERS Safety Report 20578645 (Version 1)
Quarter: 2022Q1

REPORT INFORMATION
  Report Type: Spontaneous
  Country: CN (occurrence: CN)
  Receive Date: 20220310
  Receipt Date: 20220310
  Transmission Date: 20220423
  Serious: Yes (Other)
  Sender: FDA-Public Use
  Company Number: CN-BAXTER-2022BAX004875

PATIENT
  Age: 59 Year
  Sex: Female
  Weight: 82 kg

DRUGS (8)
  1. CYCLOPHOSPHAMIDE [Suspect]
     Active Substance: CYCLOPHOSPHAMIDE
     Indication: Breast cancer female
     Dosage: FIRST CYCLE: CYCLOPHOSPHAMIDE + SODIUM CHLORIDE INJECTION
     Route: 041
  2. CYCLOPHOSPHAMIDE [Suspect]
     Active Substance: CYCLOPHOSPHAMIDE
     Dosage: SECOND CYCLE: CYCLOPHOSPHAMIDE (0.9 G) + SODIUM CHLORIDE INJECTION (50 ML)
     Route: 041
     Dates: start: 20220113, end: 20220113
  3. SODIUM CHLORIDE [Suspect]
     Active Substance: SODIUM CHLORIDE
     Indication: Medication dilution
     Dosage: FIRST CYCLE: DOCETAXEL + SODIUM CHLORIDE INJECTION
     Route: 041
  4. SODIUM CHLORIDE [Suspect]
     Active Substance: SODIUM CHLORIDE
     Dosage: SECOND CYCLE: DOCETAXEL (120 MG) + SODIUM CHLORIDE INJECTION (200 ML)
     Route: 041
     Dates: start: 20220113, end: 20220113
  5. DOCETAXEL [Suspect]
     Active Substance: DOCETAXEL
     Indication: Breast cancer female
     Dosage: FIRST CYCLE: DOCETAXEL + SODIUM CHLORIDE INJECTION
     Route: 041
  6. DOCETAXEL [Suspect]
     Active Substance: DOCETAXEL
     Dosage: SECOND CYCLE, DOCETAXEL (120 MG) + SODIUM CHLORIDE INJECTION (200 ML)
     Route: 041
     Dates: start: 20220113, end: 20220113
  7. SODIUM CHLORIDE [Suspect]
     Active Substance: SODIUM CHLORIDE
     Indication: Medication dilution
     Dosage: FIRST CYCLE: CYCLOPHOSPHAMIDE + SODIUM CHLORIDE INJECTION
     Route: 041
  8. SODIUM CHLORIDE [Suspect]
     Active Substance: SODIUM CHLORIDE
     Dosage: SECOND CYCLE: CYCLOPHOSPHAMIDE (0.9 G) + SODIUM CHLORIDE INJECTION (50 ML)
     Route: 041
     Dates: start: 20220113, end: 20220113

REACTIONS (8)
  - White blood cell count decreased [Recovering/Resolving]
  - Neutrophil count decreased [Recovering/Resolving]
  - Myelosuppression [Unknown]
  - Sleep disorder [Recovering/Resolving]
  - Muscular weakness [Unknown]
  - Dysstasia [Unknown]
  - Oedema peripheral [Recovering/Resolving]
  - Arthralgia [Recovering/Resolving]

NARRATIVE: CASE EVENT DATE: 20220119
